FAERS Safety Report 17221434 (Version 1)
Quarter: 2020Q1

REPORT INFORMATION
  Report Type: Spontaneous
  Country: GB (occurrence: GB)
  Receive Date: 20200101
  Receipt Date: 20200101
  Transmission Date: 20200409
  Serious: Yes (Other)
  Sender: FDA-Public Use
  Company Number: GB-AUROBINDO-AUR-APL-2019-108814

PATIENT
  Age: 30 Year
  Sex: Male

DRUGS (7)
  1. CLOZARIL [Suspect]
     Active Substance: CLOZAPINE
     Indication: SCHIZOPHRENIA
     Dosage: 425 MILLIGRAM, ONCE A DAY (PM)
     Route: 048
     Dates: start: 20191205
  2. SERTRALINE [Suspect]
     Active Substance: SERTRALINE HYDROCHLORIDE
     Indication: PRODUCT USED FOR UNKNOWN INDICATION
     Dosage: UNK
     Route: 065
     Dates: start: 201910, end: 2019
  3. CLOZARIL [Suspect]
     Active Substance: CLOZAPINE
     Dosage: 450 MILLIGRAM
     Route: 048
     Dates: start: 20080204
  4. LISDEXAMFETAMINE [Suspect]
     Active Substance: LISDEXAMFETAMINE
     Indication: PRODUCT USED FOR UNKNOWN INDICATION
     Dosage: 20 MILLIGRAM
     Route: 065
     Dates: start: 201911
  5. OMACOR [Concomitant]
     Active Substance: OMEGA-3-ACID ETHYL ESTERS
     Indication: PRODUCT USED FOR UNKNOWN INDICATION
     Dosage: UNK UNK, ONCE A DAY (UNK, BID)
     Route: 065
  6. LISDEXAMFETAMINE [Suspect]
     Active Substance: LISDEXAMFETAMINE
     Dosage: 50 MILLIGRAM, ONCE A DAY (AM)
     Route: 065
     Dates: start: 201910
  7. GABAPENTIN. [Concomitant]
     Active Substance: GABAPENTIN
     Indication: PRODUCT USED FOR UNKNOWN INDICATION
     Dosage: 300 MILLIGRAM, 3 TIMES A DAY
     Route: 065

REACTIONS (11)
  - White blood cell count increased [Recovering/Resolving]
  - Blood creatine phosphokinase increased [Recovered/Resolved]
  - Platelet count increased [Recovered/Resolved]
  - Viral infection [Unknown]
  - Eosinophilia [Not Recovered/Not Resolved]
  - Neutrophil count increased [Recovered/Resolved]
  - Mean cell haemoglobin concentration decreased [Recovered/Resolved]
  - Red cell distribution width increased [Recovered/Resolved]
  - Malaise [Unknown]
  - Basophil count increased [Not Recovered/Not Resolved]
  - Serotonin syndrome [Unknown]

NARRATIVE: CASE EVENT DATE: 20121204
